FAERS Safety Report 9282539 (Version 1)
Quarter: 2013Q2

REPORT INFORMATION
  Report Type: Spontaneous
  Country: US (occurrence: US)
  Receive Date: 20130510
  Receipt Date: 20130510
  Transmission Date: 20140414
  Serious: Yes (Hospitalization)
  Sender: FDA-Public Use
  Company Number: US-PFIZER INC-2013141551

PATIENT
  Age: 72 Year
  Sex: Female

DRUGS (1)
  1. VFEND [Suspect]
     Indication: COMPLICATIONS OF BONE MARROW TRANSPLANT
     Dosage: 200 MG, 2X/DAY
     Route: 048
     Dates: start: 20121212

REACTIONS (1)
  - Leukaemia [Unknown]
